FAERS Safety Report 4444024-7 (Version None)
Quarter: 2004Q3

REPORT INFORMATION
  Report Type: 
  Country: None (occurrence: None)
  Receive Date: 20040729
  Receipt Date: 20031120
  Transmission Date: 20050211
  Serious: Yes (Other)
  Sender: FDA-Public Use
  Company Number: US-JNJFOC-20031102841

PATIENT
  Age: 46 Year
  Sex: Female

DRUGS (3)
  1. RISPERDAL [Suspect]
  2. LEVOXYL [Concomitant]
  3. ANTI-DEPRESSANTS (ANTIDEPRESSANTS) [Concomitant]

REACTIONS (2)
  - DIABETES MELLITUS [None]
  - WEIGHT INCREASED [None]
